FAERS Safety Report 26208493 (Version 2)
Quarter: 2025Q4

REPORT INFORMATION
  Report Type: Spontaneous
  Country: US (occurrence: US)
  Receive Date: 20251229
  Receipt Date: 20251229
  Transmission Date: 20260118
  Serious: Yes (Death)
  Sender: ASTELLAS
  Company Number: US-ASTELLAS-2025-AER-071363

PATIENT
  Sex: Male

DRUGS (14)
  1. VYLOY [Suspect]
     Active Substance: ZOLBETUXIMAB-CLZB
     Indication: Gastric cancer
     Dosage: FIRST DOSE 400MG/METER SQUARE, WHICH WAS 700MG EVERY 14 DAYS VIA INFUSION
     Route: 065
     Dates: start: 20250916, end: 20250916
  2. VYLOY [Suspect]
     Active Substance: ZOLBETUXIMAB-CLZB
     Indication: Oesophageal carcinoma
     Dosage: ROUTE: INFUSION ?PATIENT RECEIVED: 1 100MG VIAL, 2 300MG?VIALS
     Route: 065
     Dates: start: 20251014, end: 20251014
  3. ALPRAZOLAM [Concomitant]
     Active Substance: ALPRAZOLAM
     Indication: Anxiety
     Route: 048
     Dates: start: 202504
  4. COMPAZINE [Concomitant]
     Active Substance: PROCHLORPERAZINE MALEATE
     Indication: Nausea
     Dosage: AS NEEDED
     Route: 048
     Dates: start: 20250916
  5. METOPROLOL [Concomitant]
     Active Substance: METOPROLOL
     Indication: Hypertension
     Route: 048
     Dates: start: 202410
  6. OLANZAPINE [Concomitant]
     Active Substance: OLANZAPINE
     Indication: Nausea
     Dosage: ONCE A NIGHT BEFORE VYLOY INFUSIONS
     Route: 048
     Dates: start: 20250916, end: 20251014
  7. OXYCODONE [Concomitant]
     Active Substance: OXYCODONE
     Indication: Pain
     Route: 048
     Dates: start: 202503
  8. SUCRALFATE [Concomitant]
     Active Substance: SUCRALFATE
     Indication: Oropharyngeal pain
     Route: 048
     Dates: start: 202507
  9. PANTOPRAZOLE [Concomitant]
     Active Substance: PANTOPRAZOLE
     Indication: Gastrooesophageal reflux disease
     Route: 048
     Dates: start: 202507
  10. OXALIPLATIN [Concomitant]
     Active Substance: OXALIPLATIN
     Indication: Oesophageal carcinoma
     Dosage: ROUTE: INFUSION?GIVEN WITH VYLOL TREATMENT
     Route: 050
     Dates: start: 20250916, end: 20251014
  11. LEUCOVORIN [Concomitant]
     Active Substance: LEUCOVORIN\LEUCOVORIN CALCIUM
     Indication: Oesophageal carcinoma
     Dosage: ROUTE: INFUSION?GIVEN WITH VYLOY TREATMENT
     Route: 065
     Dates: start: 20250916, end: 20251014
  12. FLUOROURACIL [Concomitant]
     Active Substance: FLUOROURACIL
     Indication: Oesophageal carcinoma
     Dosage: VIA PUMP, OVER TWO DAYS AFTER VYLOY TREATMENT, EVERY 14 DAYS
     Route: 042
     Dates: start: 20250916, end: 20251014
  13. FLUOROURACIL [Concomitant]
     Active Substance: FLUOROURACIL
     Dosage: IV PUSH ADMINISTERED WITH VYLOY TREATMENT
     Route: 042
     Dates: start: 20250916, end: 20251014
  14. PEGFILGRASTIM [Concomitant]
     Active Substance: PEGFILGRASTIM
     Indication: Oesophageal carcinoma
     Dosage: THE DAY AFTER RECEIVING VYLOY
     Route: 058
     Dates: start: 20250916

REACTIONS (1)
  - Malignant neoplasm progression [Fatal]
